FAERS Safety Report 6542122-5 (Version None)
Quarter: 2010Q1

REPORT INFORMATION
  Report Type: 
  Country: None (occurrence: None)
  Receive Date: 20100119
  Receipt Date: 20100115
  Transmission Date: 20100710
  Serious: Yes (Hospitalization, Other)
  Sender: FDA-Public Use
  Company Number: GB-PERRIGO-09GB000126

PATIENT

DRUGS (2)
  1. IBUPROFEN 12063/0020 200 MG [Suspect]
     Indication: DRUG USE FOR UNKNOWN INDICATION
     Dosage: UNKNOWN
     Route: 048
  2. GARLIC POWDER 16028/0058 150 MG [Suspect]
     Indication: DRUG USE FOR UNKNOWN INDICATION
     Dosage: UNKNOWN
     Route: 048

REACTIONS (2)
  - BLEEDING TIME PROLONGED [None]
  - HAEMORRHAGE INTRACRANIAL [None]
